FAERS Safety Report 7092638-0 (Version None)
Quarter: 2010Q4

REPORT INFORMATION
  Report Type: 
  Country: None (occurrence: None)
  Receive Date: 20101110
  Receipt Date: 20101101
  Transmission Date: 20110411
  Serious: Yes (Other)
  Sender: FDA-Public Use
  Company Number: US-US-EMD SERONO, INC.-7015878

PATIENT
  Sex: Male
  Weight: 104 kg

DRUGS (9)
  1. REBIF [Suspect]
     Indication: MULTIPLE SCLEROSIS
     Route: 058
     Dates: start: 20100811, end: 20100101
  2. REBIF [Suspect]
     Dates: start: 20100101, end: 20100101
  3. REBIF [Suspect]
     Route: 058
     Dates: start: 20100101
  4. GLYBURIDE [Concomitant]
     Indication: TYPE 2 DIABETES MELLITUS
     Dates: end: 20100401
  5. GLYBURIDE [Concomitant]
     Dates: start: 20100101
  6. ACTOS [Concomitant]
     Indication: TYPE 2 DIABETES MELLITUS
     Dates: end: 20100401
  7. ACTOS [Concomitant]
     Dates: start: 20100101
  8. METFORMIN [Concomitant]
     Indication: TYPE 2 DIABETES MELLITUS
     Dates: end: 20100401
  9. METFORMIN [Concomitant]
     Dates: start: 20100101

REACTIONS (7)
  - ANXIETY [None]
  - BLOOD GLUCOSE ABNORMAL [None]
  - DEPRESSION [None]
  - DYSGEUSIA [None]
  - MALAISE [None]
  - PALPITATIONS [None]
  - WEIGHT DECREASED [None]
